FAERS Safety Report 5159468-8 (Version None)
Quarter: 2006Q4

REPORT INFORMATION
  Report Type: 
  Country: None (occurrence: None)
  Receive Date: 20061122
  Receipt Date: 20061122
  Transmission Date: 20070319
  Serious: Yes (Hospitalization)
  Sender: FDA-Public Use
  Company Number: None

PATIENT
  Sex: Male
  Weight: 103 kg

DRUGS (2)
  1. CYTARABINE [Suspect]
     Dosage: 1140 MG
     Dates: start: 20060901, end: 20060905
  2. DAUNORUBICIN HCL [Suspect]
     Dosage: 274 MG
     Dates: end: 20060902

REACTIONS (23)
  - ASTHENIA [None]
  - CLOSTRIDIAL INFECTION [None]
  - CONFUSIONAL STATE [None]
  - DIALYSIS [None]
  - ENCEPHALOPATHY [None]
  - ENTEROCOCCAL INFECTION [None]
  - EYE DISORDER [None]
  - FALL [None]
  - HYPERTENSION [None]
  - HYPOKALAEMIA [None]
  - ISCHAEMIC STROKE [None]
  - LOSS OF CONSCIOUSNESS [None]
  - NERVOUS SYSTEM DISORDER [None]
  - NEUTROPENIA [None]
  - NUCLEAR MAGNETIC RESONANCE IMAGING BRAIN ABNORMAL [None]
  - PARANEOPLASTIC SYNDROME [None]
  - PROTHROMBIN TIME ABNORMAL [None]
  - PYREXIA [None]
  - RENAL TUBULAR NECROSIS [None]
  - SEPTIC EMBOLUS [None]
  - SUBARACHNOID HAEMORRHAGE [None]
  - SYNCOPE [None]
  - TROPONIN T INCREASED [None]
